FAERS Safety Report 7598196-6 (Version None)
Quarter: 2011Q3

REPORT INFORMATION
  Report Type: 
  Country: None (occurrence: None)
  Receive Date: 20110708
  Receipt Date: 20110629
  Transmission Date: 20111222
  Serious: Yes (Other)
  Sender: FDA-Public Use
  Company Number: US-ABBOTT-11P-163-0835678-00

PATIENT
  Age: 38 Year
  Sex: Female
  Weight: 83.99 kg

DRUGS (3)
  1. MAXALT [Concomitant]
     Indication: MIGRAINE
  2. LUPRON DEPOT [Suspect]
     Indication: ENDOMETRIOSIS
     Dates: start: 20110201, end: 20110608
  3. TOPAMAX [Concomitant]
     Indication: MIGRAINE

REACTIONS (6)
  - MIGRAINE [None]
  - BLOOD PRESSURE INCREASED [None]
  - HEADACHE [None]
  - UNEVALUABLE EVENT [None]
  - HOT FLUSH [None]
  - RETCHING [None]
